FAERS Safety Report 8460513-2 (Version None)
Quarter: 2012Q2

REPORT INFORMATION
  Report Type: 
  Country: None (occurrence: None)
  Receive Date: 20120622
  Receipt Date: 20120611
  Transmission Date: 20120825
  Serious: No
  Sender: FDA-Public Use
  Company Number: US-ASTRAZENECA-2012SE38992

PATIENT
  Sex: Female

DRUGS (3)
  1. RHINOCORT [Suspect]
     Indication: SINUS DISORDER
     Route: 045
  2. PROVENTIL GENTLEHALER [Concomitant]
     Indication: ASTHMA
  3. STEROIDS [Concomitant]

REACTIONS (2)
  - OFF LABEL USE [None]
  - ASTHMA [None]
